FAERS Safety Report 17820960 (Version 1)
Quarter: 2020Q2

REPORT INFORMATION
  Report Type: Spontaneous
  Country: JP (occurrence: JP)
  Receive Date: 20200525
  Receipt Date: 20200525
  Transmission Date: 20200714
  Serious: Yes (Other)
  Sender: FDA-Public Use
  Company Number: JP-PFIZER INC-2020191377

PATIENT
  Age: 74 Year
  Sex: Male

DRUGS (6)
  1. NIVOLUMAB [Concomitant]
     Active Substance: NIVOLUMAB
     Dosage: UNK
  2. CAPECITABINE. [Suspect]
     Active Substance: CAPECITABINE
     Indication: METASTATIC GASTRIC CANCER
     Dosage: UNK, CYCLIC
  3. RAMUCIRUMAB [Concomitant]
     Active Substance: RAMUCIRUMAB
     Dosage: UNK
  4. OXALIPLATIN. [Suspect]
     Active Substance: OXALIPLATIN
     Indication: METASTATIC GASTRIC CANCER
     Dosage: UNK, CYCLIC
  5. IRINOTECAN [Concomitant]
     Active Substance: IRINOTECAN
     Dosage: UNK
  6. NAB-PACLITAXEL [Concomitant]
     Active Substance: PACLITAXEL
     Indication: GASTRIC CANCER STAGE IV
     Dosage: UNK

REACTIONS (2)
  - Neuropathy peripheral [Unknown]
  - Diarrhoea [Unknown]
